FAERS Safety Report 9667245 (Version 5)
Quarter: 2014Q1

REPORT INFORMATION
  Report Type: Report from Study
  Country: BR (occurrence: BR)
  Receive Date: 20131104
  Receipt Date: 20140227
  Transmission Date: 20141002
  Serious: Yes (Hospitalization, Other)
  Sender: FDA-Public Use
  Company Number: BR-ABBVIE-13P-020-1163089-00

PATIENT
  Sex: Female
  Weight: 80 kg

DRUGS (13)
  1. HUMIRA [Suspect]
     Indication: CROHN^S DISEASE
     Route: 058
     Dates: start: 20130801
  2. HUMIRA [Suspect]
     Route: 058
     Dates: start: 20131011
  3. PREDNISONE [Suspect]
     Indication: CROHN^S DISEASE
     Route: 048
     Dates: start: 20081231, end: 20131212
  4. ALPRAZOLAM [Concomitant]
     Indication: SLEEP DISORDER THERAPY
     Dosage: AT NIGHT
     Route: 048
     Dates: start: 2010
  5. METHOTREXATE(LEXATO) [Concomitant]
     Indication: ANTIDEPRESSANT THERAPY
     Dosage: IN THE MORNING
     Route: 048
  6. GABAPENTIN [Concomitant]
     Indication: PAIN
     Route: 048
     Dates: start: 201308
  7. METHADONE [Concomitant]
     Indication: PAIN
     Route: 048
     Dates: start: 201308
  8. METHADONE [Concomitant]
  9. NORTRIPTYLINE [Concomitant]
     Indication: SLEEP DISORDER THERAPY
     Dosage: 1 TAB IN THE MORNING AND 1 TAB AT NIGHT
     Route: 048
     Dates: start: 201308
  10. TRAMADOL HYDROCHLORIDE [Concomitant]
     Indication: PAIN
     Dosage: 1 TAB IN THE MORNING AND 1 TAB AT NIGHT
     Route: 048
     Dates: start: 201311
  11. AZATHIOPRINE [Concomitant]
     Indication: IMMUNOSUPPRESSANT DRUG THERAPY
     Route: 048
     Dates: start: 2009
  12. SIMETHICONE [Concomitant]
     Indication: FLATULENCE
     Route: 048
     Dates: start: 2009
  13. ALPRAZOLAM [Concomitant]
     Indication: SLEEP DISORDER THERAPY

REACTIONS (12)
  - Abdominal distension [Recovering/Resolving]
  - Intestinal obstruction [Unknown]
  - Adhesion [Unknown]
  - Swelling [Not Recovered/Not Resolved]
  - Weight increased [Unknown]
  - Purulent discharge [Unknown]
  - Post procedural infection [Unknown]
  - Hospitalisation [Unknown]
  - Hospitalisation [Unknown]
  - Hospitalisation [Unknown]
  - Weight decreased [Unknown]
  - Generalised oedema [Unknown]
